FAERS Safety Report 9780312 (Version 2)
Quarter: 2013Q4

REPORT INFORMATION
  Report Type: Not Available
  Country: US (occurrence: US)
  Receive Date: 20131224
  Receipt Date: 20131224
  Transmission Date: 20140711
  Serious: Yes (Hospitalization)
  Sender: FDA-Public Use
  Company Number: US-ONYX-2013-1627

PATIENT
  Age: 67 Year
  Sex: Female

DRUGS (14)
  1. KYPROLIS [Suspect]
     Indication: PLASMA CELL MYELOMA
     Route: 042
     Dates: start: 2013, end: 201309
  2. KYPROLIS [Suspect]
     Route: 042
     Dates: start: 201309
  3. KYPROLIS [Suspect]
     Route: 042
     Dates: start: 20131118
  4. MORPHINE [Concomitant]
     Indication: NEUROPATHY PERIPHERAL
     Dates: end: 201309
  5. MORPHINE [Concomitant]
     Indication: PAIN
  6. ACYCLOVIR [Concomitant]
     Indication: PROPHYLAXIS
  7. ALLOPURINOL [Concomitant]
     Indication: RENAL FAILURE
  8. FENTANYL [Concomitant]
     Indication: PAIN
  9. DILAUDID [Concomitant]
     Indication: PAIN
  10. MAGNESIUM OXIDE [Concomitant]
     Indication: SUPPLEMENTATION THERAPY
  11. PRILOSEC [Concomitant]
     Indication: PROPHYLAXIS
  12. ZOFRAN [Concomitant]
     Indication: PROPHYLAXIS
  13. K-DUR [Concomitant]
     Indication: SUPPLEMENTATION THERAPY
  14. SODIUM BICARB [Concomitant]
     Indication: RENAL FAILURE

REACTIONS (9)
  - Diverticulitis [Recovered/Resolved]
  - Abscess intestinal [Recovered/Resolved]
  - Dehydration [Unknown]
  - Confusional state [Recovered/Resolved]
  - Blood calcium increased [Not Recovered/Not Resolved]
  - Local swelling [Recovered/Resolved]
  - Blood potassium increased [Recovered/Resolved]
  - Asthenia [Recovered/Resolved]
  - Incision site haemorrhage [Recovered/Resolved]
